FAERS Safety Report 19793261 (Version 2)
Quarter: 2021Q4

REPORT INFORMATION
  Report Type: Spontaneous
  Country: US (occurrence: US)
  Receive Date: 20210906
  Receipt Date: 20211119
  Transmission Date: 20220303
  Serious: Yes (Disabling)
  Sender: FDA-Public Use
  Company Number: US-NOVARTISPH-NVSC2021US192813

PATIENT
  Sex: Female
  Weight: 85.261 kg

DRUGS (1)
  1. CHOLESTYRAMINE [Suspect]
     Active Substance: CHOLESTYRAMINE
     Indication: Product used for unknown indication
     Dosage: 4 G, QD
     Route: 048
     Dates: start: 20200220

REACTIONS (4)
  - Tooth injury [Unknown]
  - Tooth loss [Unknown]
  - Frustration tolerance decreased [Unknown]
  - Product communication issue [Unknown]
